FAERS Safety Report 13536839 (Version 2)
Quarter: 2018Q3

REPORT INFORMATION
  Report Type: Spontaneous
  Country: US (occurrence: US)
  Receive Date: 20170511
  Receipt Date: 20180717
  Transmission Date: 20181010
  Serious: No
  Sender: FDA-Public Use
  Company Number: US-PFIZER INC-2017203652

PATIENT
  Age: 64 Year
  Sex: Male

DRUGS (1)
  1. SUTENT [Suspect]
     Active Substance: SUNITINIB MALATE
     Indication: BENIGN NEOPLASM
     Dosage: 50 MG, CYCLIC (TAKE 1 CAPSULE BY MOUTH DAILY FOR 4 WEEKS AND THEN 2 WEEKS OFF)
     Route: 048
     Dates: start: 201609

REACTIONS (4)
  - Chest pain [Unknown]
  - Headache [Unknown]
  - Dyspepsia [Unknown]
  - Feeling abnormal [Unknown]
